FAERS Safety Report 25980109 (Version 1)
Quarter: 2025Q4

REPORT INFORMATION
  Report Type: Spontaneous
  Country: CA (occurrence: CA)
  Receive Date: 20251030
  Receipt Date: 20251030
  Transmission Date: 20260118
  Serious: Yes (Other)
  Sender: CELLTRION
  Company Number: CA-CELLTRION INC.-2025CA039236

PATIENT

DRUGS (2)
  1. TRUXIMA [Suspect]
     Active Substance: RITUXIMAB-ABBS
     Indication: Vasculitis
     Dosage: 1000 MILLIGRAM DAY 1 + 15
     Route: 042
     Dates: start: 20251006
  2. AMLODIPINE [Concomitant]
     Active Substance: AMLODIPINE BESYLATE
     Indication: Blood pressure measurement
     Dosage: 5MG PO DAILY
     Route: 048

REACTIONS (4)
  - Hypertension [Unknown]
  - Balance disorder [Unknown]
  - Headache [Unknown]
  - Dizziness [Unknown]
